FAERS Safety Report 4370078-2 (Version None)
Quarter: 2004Q2

REPORT INFORMATION
  Report Type: 
  Country: None (occurrence: None)
  Receive Date: 20040526
  Receipt Date: 20040126
  Transmission Date: 20050107
  Serious: Yes (Hospitalization)
  Sender: FDA-Public Use
  Company Number: SUS1-2004-00040

PATIENT
  Age: 85 Year
  Sex: Female

DRUGS (5)
  1. AGRYLIN (ANAGRELIDE  HYDROCHLORIDE) CAPSULE [Suspect]
     Indication: POLYCYTHAEMIA VERA
     Dosage: 0.5 MG, 4X/DAY:QID, ORAL
     Route: 048
     Dates: start: 20030225
  2. PLAVIX [Concomitant]
  3. PANTOPRAZOLE (PANTOPRAZOLE) [Concomitant]
  4. VITAMIN D [Concomitant]
  5. LAXATIVES [Concomitant]

REACTIONS (2)
  - PALPITATIONS [None]
  - SYNCOPE [None]
